FAERS Safety Report 13571075 (Version 1)
Quarter: 2017Q2

REPORT INFORMATION
  Report Type: Spontaneous
  Country: US (occurrence: US)
  Receive Date: 20170522
  Receipt Date: 20170522
  Transmission Date: 20170830
  Serious: Yes (Other)
  Sender: FDA-Public Use
  Company Number: None

PATIENT
  Age: 63 Year
  Sex: Female
  Weight: 61.65 kg

DRUGS (1)
  1. FORTEO [Suspect]
     Active Substance: TERIPARATIDE
     Indication: OSTEOPOROSIS
     Route: 058
     Dates: start: 20160828, end: 20170522

REACTIONS (5)
  - Alopecia [None]
  - Fatigue [None]
  - Hypersomnia [None]
  - Weight increased [None]
  - Madarosis [None]

NARRATIVE: CASE EVENT DATE: 20170522
